FAERS Safety Report 6971240-2 (Version None)
Quarter: 2010Q3

REPORT INFORMATION
  Report Type: 
  Country: None (occurrence: None)
  Receive Date: 20100908
  Receipt Date: 20100902
  Transmission Date: 20110219
  Serious: Yes (Hospitalization)
  Sender: FDA-Public Use
  Company Number: US-WYE-H17302110

PATIENT
  Age: 43 Year
  Sex: Female
  Weight: 40.86 kg

DRUGS (4)
  1. ROBITUSSIN CHILDREN'S COUGH AND COLD LONG ACTING [Suspect]
     Indication: INSOMNIA
     Route: 048
     Dates: start: 20100728, end: 20100728
  2. ZOLOFT [Concomitant]
     Indication: DEPRESSION
     Dosage: UNKNOWN
     Route: 048
     Dates: end: 20100101
  3. KLONOPIN [Concomitant]
     Indication: ANXIETY
     Dosage: UNKNOWN
     Route: 048
  4. BENADRYL [Suspect]
     Indication: PRODUCT USED FOR UNKNOWN INDICATION
     Route: 048
     Dates: start: 20100728, end: 20100728

REACTIONS (12)
  - ABASIA [None]
  - CHROMATURIA [None]
  - DYSURIA [None]
  - INCORRECT DOSE ADMINISTERED [None]
  - MOTOR DYSFUNCTION [None]
  - NOCTURIA [None]
  - PRODUCT PACKAGING ISSUE [None]
  - PRODUCT QUALITY ISSUE [None]
  - PRODUCT TASTE ABNORMAL [None]
  - URINARY BLADDER HAEMORRHAGE [None]
  - URINARY RETENTION [None]
  - VISUAL IMPAIRMENT [None]
